FAERS Safety Report 25257512 (Version 1)
Quarter: 2025Q2

REPORT INFORMATION
  Report Type: Spontaneous
  Country: ES (occurrence: ES)
  Receive Date: 20250430
  Receipt Date: 20250430
  Transmission Date: 20250716
  Serious: Yes (Hospitalization, Other)
  Sender: MYLAN
  Company Number: ES-CHEPLA-2025004389

PATIENT
  Age: 63 Year
  Sex: Female

DRUGS (84)
  1. CLOZAPINE [Suspect]
     Active Substance: CLOZAPINE
     Indication: Schizophrenia
     Dosage: 300 MILLIGRAM, QD
     Dates: start: 2009, end: 201205
  2. CLOZAPINE [Suspect]
     Active Substance: CLOZAPINE
     Dosage: 300 MILLIGRAM, QD
     Route: 065
     Dates: start: 2009, end: 201205
  3. CLOZAPINE [Suspect]
     Active Substance: CLOZAPINE
     Dosage: 300 MILLIGRAM, QD
     Route: 065
     Dates: start: 2009, end: 201205
  4. CLOZAPINE [Suspect]
     Active Substance: CLOZAPINE
     Dosage: 300 MILLIGRAM, QD
     Dates: start: 2009, end: 201205
  5. OLANZAPINE [Suspect]
     Active Substance: OLANZAPINE
     Indication: Schizophrenia
     Dosage: 30 MILLIGRAM, QD
     Dates: start: 2009, end: 2009
  6. OLANZAPINE [Suspect]
     Active Substance: OLANZAPINE
     Dosage: 30 MILLIGRAM, QD
     Dates: start: 2009, end: 2009
  7. OLANZAPINE [Suspect]
     Active Substance: OLANZAPINE
     Dosage: 30 MILLIGRAM, QD
     Route: 065
     Dates: start: 2009, end: 2009
  8. OLANZAPINE [Suspect]
     Active Substance: OLANZAPINE
     Dosage: 30 MILLIGRAM, QD
     Route: 065
     Dates: start: 2009, end: 2009
  9. OLANZAPINE [Suspect]
     Active Substance: OLANZAPINE
     Dosage: 15 MILLIGRAM, QD
     Dates: start: 201205, end: 2012
  10. OLANZAPINE [Suspect]
     Active Substance: OLANZAPINE
     Dosage: 15 MILLIGRAM, QD
     Dates: start: 201205, end: 2012
  11. OLANZAPINE [Suspect]
     Active Substance: OLANZAPINE
     Dosage: 15 MILLIGRAM, QD
     Route: 065
     Dates: start: 201205, end: 2012
  12. OLANZAPINE [Suspect]
     Active Substance: OLANZAPINE
     Dosage: 15 MILLIGRAM, QD
     Route: 065
     Dates: start: 201205, end: 2012
  13. OLANZAPINE [Suspect]
     Active Substance: OLANZAPINE
     Dosage: 30 MILLIGRAM, QD
     Dates: start: 201206
  14. OLANZAPINE [Suspect]
     Active Substance: OLANZAPINE
     Dosage: 30 MILLIGRAM, QD
     Dates: start: 201206
  15. OLANZAPINE [Suspect]
     Active Substance: OLANZAPINE
     Dosage: 30 MILLIGRAM, QD
     Route: 065
     Dates: start: 201206
  16. OLANZAPINE [Suspect]
     Active Substance: OLANZAPINE
     Dosage: 30 MILLIGRAM, QD
     Route: 065
     Dates: start: 201206
  17. OLANZAPINE [Suspect]
     Active Substance: OLANZAPINE
     Dosage: 20 MILLIGRAM, QD
     Dates: start: 202306
  18. OLANZAPINE [Suspect]
     Active Substance: OLANZAPINE
     Dosage: 20 MILLIGRAM, QD
     Dates: start: 202306
  19. OLANZAPINE [Suspect]
     Active Substance: OLANZAPINE
     Dosage: 20 MILLIGRAM, QD
     Route: 065
     Dates: start: 202306
  20. OLANZAPINE [Suspect]
     Active Substance: OLANZAPINE
     Dosage: 20 MILLIGRAM, QD
     Route: 065
     Dates: start: 202306
  21. OLANZAPINE [Suspect]
     Active Substance: OLANZAPINE
     Dosage: 10 MILLIGRAM, QD
     Dates: start: 202306
  22. OLANZAPINE [Suspect]
     Active Substance: OLANZAPINE
     Dosage: 10 MILLIGRAM, QD
     Route: 065
     Dates: start: 202306
  23. OLANZAPINE [Suspect]
     Active Substance: OLANZAPINE
     Dosage: 10 MILLIGRAM, QD
     Dates: start: 202306
  24. OLANZAPINE [Suspect]
     Active Substance: OLANZAPINE
     Dosage: 10 MILLIGRAM, QD
     Route: 065
     Dates: start: 202306
  25. RISPERIDONE [Suspect]
     Active Substance: RISPERIDONE
     Indication: Schizophrenia
     Dosage: 12 MILLIGRAM, QD
     Dates: start: 200910, end: 2009
  26. RISPERIDONE [Suspect]
     Active Substance: RISPERIDONE
     Dosage: 12 MILLIGRAM, QD
     Route: 065
     Dates: start: 200910, end: 2009
  27. RISPERIDONE [Suspect]
     Active Substance: RISPERIDONE
     Dosage: 12 MILLIGRAM, QD
     Route: 065
     Dates: start: 200910, end: 2009
  28. RISPERIDONE [Suspect]
     Active Substance: RISPERIDONE
     Dosage: 12 MILLIGRAM, QD
     Dates: start: 200910, end: 2009
  29. ARIPIPRAZOLE [Suspect]
     Active Substance: ARIPIPRAZOLE
     Indication: Schizophrenia
     Dosage: 10 MILLIGRAM, QD
     Dates: start: 202306
  30. ARIPIPRAZOLE [Suspect]
     Active Substance: ARIPIPRAZOLE
     Dosage: 10 MILLIGRAM, QD
     Route: 065
     Dates: start: 202306
  31. ARIPIPRAZOLE [Suspect]
     Active Substance: ARIPIPRAZOLE
     Dosage: 10 MILLIGRAM, QD
     Route: 065
     Dates: start: 202306
  32. ARIPIPRAZOLE [Suspect]
     Active Substance: ARIPIPRAZOLE
     Dosage: 10 MILLIGRAM, QD
     Dates: start: 202306
  33. OLANZAPINE PAMOATE [Suspect]
     Active Substance: OLANZAPINE PAMOATE
     Indication: Schizophrenia
  34. OLANZAPINE PAMOATE [Suspect]
     Active Substance: OLANZAPINE PAMOATE
     Route: 030
  35. OLANZAPINE PAMOATE [Suspect]
     Active Substance: OLANZAPINE PAMOATE
     Route: 030
  36. OLANZAPINE PAMOATE [Suspect]
     Active Substance: OLANZAPINE PAMOATE
  37. ZUCLOPENTHIXOL [Suspect]
     Active Substance: ZUCLOPENTHIXOL
     Indication: Schizophrenia
     Dosage: 200 MILLIGRAM, Q2W
     Dates: start: 200911
  38. ZUCLOPENTHIXOL [Suspect]
     Active Substance: ZUCLOPENTHIXOL
     Dosage: 200 MILLIGRAM, Q2W
     Dates: start: 200911
  39. ZUCLOPENTHIXOL [Suspect]
     Active Substance: ZUCLOPENTHIXOL
     Dosage: 200 MILLIGRAM, Q2W
     Route: 030
     Dates: start: 200911
  40. ZUCLOPENTHIXOL [Suspect]
     Active Substance: ZUCLOPENTHIXOL
     Dosage: 200 MILLIGRAM, Q2W
     Route: 030
     Dates: start: 200911
  41. ZUCLOPENTHIXOL [Suspect]
     Active Substance: ZUCLOPENTHIXOL
     Dosage: 30 MILLIGRAM, QD
  42. ZUCLOPENTHIXOL [Suspect]
     Active Substance: ZUCLOPENTHIXOL
     Dosage: 30 MILLIGRAM, QD
  43. ZUCLOPENTHIXOL [Suspect]
     Active Substance: ZUCLOPENTHIXOL
     Dosage: 30 MILLIGRAM, QD
     Route: 065
  44. ZUCLOPENTHIXOL [Suspect]
     Active Substance: ZUCLOPENTHIXOL
     Dosage: 30 MILLIGRAM, QD
     Route: 065
  45. ZUCLOPENTHIXOL [Suspect]
     Active Substance: ZUCLOPENTHIXOL
     Dosage: 20 MILLIGRAM, QD
     Dates: start: 202302
  46. ZUCLOPENTHIXOL [Suspect]
     Active Substance: ZUCLOPENTHIXOL
     Dosage: 20 MILLIGRAM, QD
     Route: 065
     Dates: start: 202302
  47. ZUCLOPENTHIXOL [Suspect]
     Active Substance: ZUCLOPENTHIXOL
     Dosage: 20 MILLIGRAM, QD
     Dates: start: 202302
  48. ZUCLOPENTHIXOL [Suspect]
     Active Substance: ZUCLOPENTHIXOL
     Dosage: 20 MILLIGRAM, QD
     Route: 065
     Dates: start: 202302
  49. ZUCLOPENTHIXOL [Suspect]
     Active Substance: ZUCLOPENTHIXOL
     Indication: Schizophrenia
  50. ZUCLOPENTHIXOL [Suspect]
     Active Substance: ZUCLOPENTHIXOL
  51. ZUCLOPENTHIXOL [Suspect]
     Active Substance: ZUCLOPENTHIXOL
     Route: 030
  52. ZUCLOPENTHIXOL [Suspect]
     Active Substance: ZUCLOPENTHIXOL
     Route: 030
  53. ZUCLOPENTHIXOL [Suspect]
     Active Substance: ZUCLOPENTHIXOL
  54. ZUCLOPENTHIXOL [Suspect]
     Active Substance: ZUCLOPENTHIXOL
  55. ZUCLOPENTHIXOL [Suspect]
     Active Substance: ZUCLOPENTHIXOL
     Route: 030
  56. ZUCLOPENTHIXOL [Suspect]
     Active Substance: ZUCLOPENTHIXOL
     Route: 030
  57. ZUCLOPENTHIXOL [Suspect]
     Active Substance: ZUCLOPENTHIXOL
     Dosage: 30 MILLIGRAM, QD
     Dates: start: 2023
  58. ZUCLOPENTHIXOL [Suspect]
     Active Substance: ZUCLOPENTHIXOL
     Dosage: 30 MILLIGRAM, QD
     Route: 065
     Dates: start: 2023
  59. ZUCLOPENTHIXOL [Suspect]
     Active Substance: ZUCLOPENTHIXOL
     Dosage: 30 MILLIGRAM, QD
     Dates: start: 2023
  60. ZUCLOPENTHIXOL [Suspect]
     Active Substance: ZUCLOPENTHIXOL
     Dosage: 30 MILLIGRAM, QD
     Route: 065
     Dates: start: 2023
  61. LURASIDONE [Suspect]
     Active Substance: LURASIDONE
     Indication: Schizophrenia
     Dosage: 18.5 MILLIGRAM, QD
     Dates: start: 2023, end: 2023
  62. LURASIDONE [Suspect]
     Active Substance: LURASIDONE
     Dosage: 18.5 MILLIGRAM, QD
     Dates: start: 2023, end: 2023
  63. LURASIDONE [Suspect]
     Active Substance: LURASIDONE
     Dosage: 18.5 MILLIGRAM, QD
     Route: 065
     Dates: start: 2023, end: 2023
  64. LURASIDONE [Suspect]
     Active Substance: LURASIDONE
     Dosage: 18.5 MILLIGRAM, QD
     Route: 065
     Dates: start: 2023, end: 2023
  65. LURASIDONE [Suspect]
     Active Substance: LURASIDONE
     Dosage: 111 MILLIGRAM, QD
     Dates: start: 202306
  66. LURASIDONE [Suspect]
     Active Substance: LURASIDONE
     Dosage: 111 MILLIGRAM, QD
     Dates: start: 202306
  67. LURASIDONE [Suspect]
     Active Substance: LURASIDONE
     Dosage: 111 MILLIGRAM, QD
     Route: 065
     Dates: start: 202306
  68. LURASIDONE [Suspect]
     Active Substance: LURASIDONE
     Dosage: 111 MILLIGRAM, QD
     Route: 065
     Dates: start: 202306
  69. PALIPERIDONE PALMITATE [Concomitant]
     Active Substance: PALIPERIDONE PALMITATE
     Indication: Schizophrenia
     Dosage: 150 MILLIGRAM, Q28D
     Route: 030
     Dates: start: 201205, end: 201206
  70. PALIPERIDONE PALMITATE [Concomitant]
     Active Substance: PALIPERIDONE PALMITATE
     Dosage: 150 MILLIGRAM, Q28D
     Dates: start: 201205, end: 201206
  71. PALIPERIDONE PALMITATE [Concomitant]
     Active Substance: PALIPERIDONE PALMITATE
     Dosage: 150 MILLIGRAM, Q28D
     Dates: start: 201205, end: 201206
  72. PALIPERIDONE PALMITATE [Concomitant]
     Active Substance: PALIPERIDONE PALMITATE
     Dosage: 150 MILLIGRAM, Q28D
     Route: 030
     Dates: start: 201205, end: 201206
  73. PALIPERIDONE PALMITATE [Concomitant]
     Active Substance: PALIPERIDONE PALMITATE
     Dosage: 6 MILLIGRAM, QD
     Route: 065
     Dates: start: 202306
  74. PALIPERIDONE PALMITATE [Concomitant]
     Active Substance: PALIPERIDONE PALMITATE
     Dosage: 6 MILLIGRAM, QD
     Dates: start: 202306
  75. PALIPERIDONE PALMITATE [Concomitant]
     Active Substance: PALIPERIDONE PALMITATE
     Dosage: 6 MILLIGRAM, QD
     Dates: start: 202306
  76. PALIPERIDONE PALMITATE [Concomitant]
     Active Substance: PALIPERIDONE PALMITATE
     Dosage: 6 MILLIGRAM, QD
     Route: 065
     Dates: start: 202306
  77. PALIPERIDONE PALMITATE [Concomitant]
     Active Substance: PALIPERIDONE PALMITATE
  78. PALIPERIDONE PALMITATE [Concomitant]
     Active Substance: PALIPERIDONE PALMITATE
  79. PALIPERIDONE PALMITATE [Concomitant]
     Active Substance: PALIPERIDONE PALMITATE
     Route: 030
  80. PALIPERIDONE PALMITATE [Concomitant]
     Active Substance: PALIPERIDONE PALMITATE
     Route: 030
  81. PALIPERIDONE PALMITATE [Concomitant]
     Active Substance: PALIPERIDONE PALMITATE
     Dosage: 100 MILLIGRAM, Q28D
     Dates: start: 20230626
  82. PALIPERIDONE PALMITATE [Concomitant]
     Active Substance: PALIPERIDONE PALMITATE
     Dosage: 100 MILLIGRAM, Q28D
     Dates: start: 20230626
  83. PALIPERIDONE PALMITATE [Concomitant]
     Active Substance: PALIPERIDONE PALMITATE
     Dosage: 100 MILLIGRAM, Q28D
     Route: 030
     Dates: start: 20230626
  84. PALIPERIDONE PALMITATE [Concomitant]
     Active Substance: PALIPERIDONE PALMITATE
     Dosage: 100 MILLIGRAM, Q28D
     Route: 030
     Dates: start: 20230626

REACTIONS (5)
  - Bicytopenia [Recovering/Resolving]
  - Bursitis infective [Unknown]
  - Leukopenia [Unknown]
  - Drug ineffective [Unknown]
  - Treatment noncompliance [Unknown]

NARRATIVE: CASE EVENT DATE: 20220701
